FAERS Safety Report 10744484 (Version 2)
Quarter: 2015Q1

REPORT INFORMATION
  Report Type: Spontaneous
  Country: US (occurrence: None)
  Receive Date: 20150126
  Receipt Date: 20150227
  Transmission Date: 20150721
  Serious: Yes (Disabling, Other)
  Sender: FDA-Public Use
  Company Number: 2015-10416

PATIENT
  Age: 78 Year
  Sex: Female
  Weight: 60.8 kg

DRUGS (2)
  1. VITAMIN D [Concomitant]
     Active Substance: CHOLECALCIFEROL
  2. EYLEA [Suspect]
     Active Substance: AFLIBERCEPT
     Indication: AGE-RELATED MACULAR DEGENERATION
     Dosage: EVERY 5 WEEKS
     Route: 031
     Dates: start: 201206

REACTIONS (3)
  - Blindness [None]
  - Cataract [None]
  - Eye injury [None]
